FAERS Safety Report 15271275 (Version 12)
Quarter: 2021Q3

REPORT INFORMATION
  Report Type: Spontaneous
  Country: JP (occurrence: JP)
  Receive Date: 20180813
  Receipt Date: 20210810
  Transmission Date: 20211014
  Serious: Yes (Death, Life-Threatening, Hospitalization, Other)
  Sender: FDA-Public Use
  Company Number: JP-UNITED THERAPEUTICS-UNT-2018-009460

PATIENT
  Age: 19 Year
  Sex: Female
  Weight: 43.8 kg

DRUGS (35)
  1. DOBUPUM [Concomitant]
     Active Substance: DOBUTAMINE HYDROCHLORIDE
     Indication: PULMONARY ARTERIAL HYPERTENSION
     Dosage: UNK
     Route: 042
     Dates: end: 20190913
  2. HALFDIGOXIN [Concomitant]
     Active Substance: DIGOXIN
     Indication: PULMONARY ARTERIAL HYPERTENSION
     Dosage: UNK
     Route: 048
     Dates: end: 20190913
  3. SAMSCA [Concomitant]
     Active Substance: TOLVAPTAN
     Indication: PULMONARY ARTERIAL HYPERTENSION
     Dosage: UNK
     Route: 048
     Dates: start: 20180806, end: 20190913
  4. POTASSIUM CHLORIDE. [Concomitant]
     Active Substance: POTASSIUM CHLORIDE
     Indication: PRODUCT USED FOR UNKNOWN INDICATION
     Dosage: UNK
     Route: 065
     Dates: end: 20190913
  5. NORADRENALINE [Concomitant]
     Active Substance: NOREPINEPHRINE
     Indication: PULMONARY ARTERIAL HYPERTENSION
     Dosage: UNK
     Route: 065
     Dates: start: 20190828, end: 20190913
  6. REMODULIN [Suspect]
     Active Substance: TREPROSTINIL
     Dosage: 0.0045 ?G/KG, CONTINUING
     Route: 058
     Dates: start: 201806, end: 2018
  7. DAIKENCHUTO [Concomitant]
     Active Substance: HERBALS
     Indication: PRODUCT USED FOR UNKNOWN INDICATION
     Dosage: UNK
     Route: 065
     Dates: end: 20190913
  8. BFLUID [Concomitant]
     Active Substance: AMINO ACIDS\DEXTROSE\ELECTROLYTES NOS\VITAMINS
     Indication: PRODUCT USED FOR UNKNOWN INDICATION
     Dosage: UNK
     Route: 065
     Dates: end: 20190913
  9. PRECEDEX [Concomitant]
     Active Substance: DEXMEDETOMIDINE HYDROCHLORIDE
     Indication: PULMONARY ARTERIAL HYPERTENSION
     Dosage: UNK
     Route: 065
     Dates: start: 20190911, end: 20190913
  10. REMODULIN [Suspect]
     Active Substance: TREPROSTINIL
     Dosage: 0.1 ?G/KG, CONTINUING
     Route: 058
     Dates: start: 2018, end: 20181226
  11. FLUITRAN [Concomitant]
     Indication: PULMONARY ARTERIAL HYPERTENSION
     Dosage: UNK
     Route: 048
     Dates: end: 20190913
  12. SOSEGON [Concomitant]
     Active Substance: PENTAZOCINE
     Indication: PULMONARY ARTERIAL HYPERTENSION
     Dosage: UNK
     Dates: start: 20190909, end: 20190913
  13. REMODULIN [Suspect]
     Active Substance: TREPROSTINIL
     Dosage: 0.06 ?G/KG, CONTINUING
     Route: 058
     Dates: start: 2018, end: 2018
  14. OPSUMIT [Concomitant]
     Active Substance: MACITENTAN
     Indication: PULMONARY ARTERIAL HYPERTENSION
     Dosage: UNK
     Route: 048
     Dates: start: 201603, end: 20190913
  15. TAZOPIPE [Concomitant]
     Active Substance: PIPERACILLIN SODIUM\TAZOBACTAM SODIUM
     Indication: PRODUCT USED FOR UNKNOWN INDICATION
     Dosage: UNK
     Route: 065
     Dates: start: 20190828, end: 20190913
  16. REMODULIN [Suspect]
     Active Substance: TREPROSTINIL
     Dosage: 0.145 ?G/KG, CONTINUING
     Route: 041
     Dates: end: 20190913
  17. MIYA?BM [Concomitant]
     Active Substance: CLOSTRIDIUM BUTYRICUM SPORES STRAIN M-55
     Indication: PROPHYLAXIS
     Dosage: UNK
     Route: 048
     Dates: end: 20190913
  18. PANTOL [Concomitant]
     Active Substance: DEXPANTHENOL
     Indication: PRODUCT USED FOR UNKNOWN INDICATION
     Dosage: UNK
     Route: 061
     Dates: start: 20190816, end: 20190913
  19. NAFAMOSTAT [Concomitant]
     Active Substance: NAFAMOSTAT
     Indication: PRODUCT USED FOR UNKNOWN INDICATION
     Dosage: UNK
     Route: 065
     Dates: start: 20190909, end: 20190913
  20. FERROUS CITRATE NA [Concomitant]
     Active Substance: SODIUM FERROUS CITRATE
     Indication: IRON DEFICIENCY ANAEMIA
     Dosage: UNK
     Route: 048
     Dates: end: 20190913
  21. OMEPRAZOLE. [Concomitant]
     Active Substance: OMEPRAZOLE
     Indication: PROPHYLAXIS
     Dosage: UNK
     Route: 065
     Dates: start: 20190817, end: 20190913
  22. TEICOPLANIN [Concomitant]
     Active Substance: TEICOPLANIN
     Indication: PRODUCT USED FOR UNKNOWN INDICATION
     Dosage: UNK
     Route: 065
     Dates: start: 20190829, end: 20190913
  23. MIDAZOLAM. [Concomitant]
     Active Substance: MIDAZOLAM
     Indication: PULMONARY ARTERIAL HYPERTENSION
     Dosage: UNK
     Route: 065
     Dates: start: 20190909, end: 20190913
  24. REMODULIN [Suspect]
     Active Substance: TREPROSTINIL
     Indication: PULMONARY ARTERIAL HYPERTENSION
     Dosage: UNK, CONTINUING
     Route: 041
     Dates: start: 20181226
  25. ADEMPAS [Concomitant]
     Active Substance: RIOCIGUAT
     Indication: PULMONARY ARTERIAL HYPERTENSION
     Dosage: UNK
     Route: 048
     Dates: start: 201712, end: 20190913
  26. SLOW?K [Concomitant]
     Active Substance: POTASSIUM CHLORIDE
     Indication: PRODUCT USED FOR UNKNOWN INDICATION
     Dosage: UNK
     Route: 048
  27. PIMOBENDAN [Concomitant]
     Active Substance: PIMOBENDAN
     Indication: PULMONARY ARTERIAL HYPERTENSION
     Dosage: UNK
     Route: 048
     Dates: end: 20190913
  28. URSODEOXYCHOLIC ACID [Concomitant]
     Active Substance: URSODIOL
     Indication: CONGESTIVE HEPATOPATHY
     Dosage: UNK
     Route: 048
     Dates: end: 20190913
  29. REMODULIN [Suspect]
     Active Substance: TREPROSTINIL
     Indication: PULMONARY ARTERIAL HYPERTENSION
     Dosage: 0.0005 ?G/KG, CONTINUING
     Route: 058
     Dates: start: 20180612, end: 201806
  30. CARELOAD [Concomitant]
     Active Substance: BERAPROST SODIUM
     Indication: PULMONARY ARTERIAL HYPERTENSION
     Dosage: UNK
     Route: 048
     Dates: end: 201806
  31. LASIX [Concomitant]
     Active Substance: FUROSEMIDE
     Indication: PULMONARY ARTERIAL HYPERTENSION
     Dosage: UNK
     Route: 048
     Dates: end: 20190913
  32. PRIMPERAN [Concomitant]
     Active Substance: METOCLOPRAMIDE HYDROCHLORIDE
     Indication: PROPHYLAXIS
     Dosage: UNK
     Route: 048
     Dates: start: 20180616, end: 20180626
  33. GASCON [Concomitant]
     Active Substance: DIMETHICONE
     Indication: RIGHT VENTRICULAR FAILURE
     Dosage: UNK
     Route: 048
     Dates: end: 20190913
  34. ASPARA POTASSIUM [Concomitant]
     Active Substance: POTASSIUM ASPARTATE
     Indication: HYPOKALAEMIA
     Dosage: UNK
     Route: 048
     Dates: end: 20190913
  35. INOVAN [Concomitant]
     Active Substance: DOPAMINE HYDROCHLORIDE
     Indication: PULMONARY ARTERIAL HYPERTENSION
     Dosage: UNK
     Route: 065
     Dates: start: 20190819, end: 20190913

REACTIONS (11)
  - Condition aggravated [Not Recovered/Not Resolved]
  - Injection site pain [Recovered/Resolved]
  - Gait disturbance [Unknown]
  - Haemoptysis [Not Recovered/Not Resolved]
  - Right ventricular failure [Fatal]
  - Injection site erythema [Unknown]
  - Right ventricular failure [Fatal]
  - Right ventricular failure [Fatal]
  - Oxygen saturation decreased [Unknown]
  - Pulmonary arterial hypertension [Not Recovered/Not Resolved]
  - Physical deconditioning [Unknown]

NARRATIVE: CASE EVENT DATE: 201806
